FAERS Safety Report 7370169-8 (Version None)
Quarter: 2011Q1

REPORT INFORMATION
  Report Type: 
  Country: None (occurrence: None)
  Receive Date: 20110323
  Receipt Date: 20100212
  Transmission Date: 20110831
  Serious: No
  Sender: FDA-Public Use
  Company Number: US-ASTRAZENECA-2010SE06695

PATIENT
  Age: 82 Year
  Sex: Male
  Weight: 77.1 kg

DRUGS (8)
  1. METOPROLOL SUCCINATE [Suspect]
     Indication: HYPERTENSION
     Route: 048
  2. SILVER SULFADIAZINE [Suspect]
     Indication: THERMAL BURN
     Dosage: APPLIED TO BURN DAILY
     Route: 061
     Dates: start: 20091021, end: 20091201
  3. PANTOPRAZOLE [Suspect]
     Indication: GASTROOESOPHAGEAL REFLUX DISEASE
     Route: 048
  4. METAMUCIL-2 [Suspect]
     Indication: CONSTIPATION
     Route: 048
  5. CRESTOR [Suspect]
     Indication: BLOOD CHOLESTEROL INCREASED
     Route: 048
  6. LISINOPRIL [Suspect]
     Indication: HYPERTENSION
     Route: 048
  7. PLAVIX [Suspect]
     Indication: CARDIAC DISORDER
     Route: 048
  8. ASPIRIN [Suspect]
     Indication: CARDIAC DISORDER
     Route: 048

REACTIONS (5)
  - IMPAIRED HEALING [None]
  - THERMAL BURN [None]
  - HYPERSENSITIVITY [None]
  - DRUG INEFFECTIVE [None]
  - CONDITION AGGRAVATED [None]
